FAERS Safety Report 9509191 (Version 1)
Quarter: 2013Q3

REPORT INFORMATION
  Report Type: Spontaneous
  Country: US (occurrence: US)
  Receive Date: 20130909
  Receipt Date: 20130909
  Transmission Date: 20140515
  Serious: No
  Sender: FDA-Public Use
  Company Number: US-BRISTOL-MYERS SQUIBB COMPANY-19022276

PATIENT
  Age: 62 Year
  Sex: Female
  Weight: 72.56 kg

DRUGS (10)
  1. ABILIFY [Suspect]
     Indication: DEPRESSION
     Dosage: MAY BE 2 YEARS
  2. CYMBALTA [Concomitant]
  3. FLEXERIL [Concomitant]
  4. VALIUM [Concomitant]
  5. OXYCODONE [Concomitant]
  6. METOPROLOL [Concomitant]
  7. LASIX [Concomitant]
  8. PRAVASTATIN SODIUM [Concomitant]
  9. ASPIRIN [Concomitant]
     Dosage: 1DF:325 UNITS NOS
  10. PLAVIX [Concomitant]
     Dosage: MAY BE 10 YEARS AGO.

REACTIONS (1)
  - Drug dose omission [Unknown]
